FAERS Safety Report 14555157 (Version 1)
Quarter: 2018Q1

REPORT INFORMATION
  Report Type: Spontaneous
  Country: US (occurrence: US)
  Receive Date: 20180219
  Receipt Date: 20180219
  Transmission Date: 20180509
  Serious: No
  Sender: FDA-Public Use
  Company Number: None

PATIENT
  Age: 23 Year
  Sex: Male
  Weight: 73.35 kg

DRUGS (8)
  1. CIPROFLOXACIN. [Suspect]
     Active Substance: CIPROFLOXACIN
     Indication: PROSTATITIS
     Dosage: ?          QUANTITY:1 TABLET(S);?
     Route: 048
     Dates: start: 20180209, end: 20180216
  2. GINSENG [Concomitant]
     Active Substance: ASIAN GINSENG
  3. MAGNESIUM [Concomitant]
     Active Substance: MAGNESIUM
  4. TRAMADOL. [Concomitant]
     Active Substance: TRAMADOL
  5. FISH OIL [Concomitant]
     Active Substance: FISH OIL
  6. VITAMIN D [Concomitant]
     Active Substance: CHOLECALCIFEROL
  7. FLUOXETINE [Concomitant]
     Active Substance: FLUOXETINE HYDROCHLORIDE
  8. NICOTINAMIDE [Concomitant]
     Active Substance: NIACINAMIDE

REACTIONS (6)
  - Fatigue [None]
  - Memory impairment [None]
  - Cognitive disorder [None]
  - Agitation [None]
  - Headache [None]
  - Vertigo [None]

NARRATIVE: CASE EVENT DATE: 20180209
